FAERS Safety Report 17338479 (Version 1)
Quarter: 2020Q1

REPORT INFORMATION
  Report Type: Spontaneous
  Country: US (occurrence: US)
  Receive Date: 20200129
  Receipt Date: 20200129
  Transmission Date: 20200409
  Serious: No
  Sender: FDA-Public Use
  Company Number: US-GLAXOSMITHKLINE-US2019215161

PATIENT
  Age: 71 Year
  Sex: Male

DRUGS (5)
  1. TARGET NICOTINE [Suspect]
     Active Substance: NICOTINE
     Indication: SMOKING CESSATION THERAPY
     Dosage: UNK
     Route: 065
  2. EQUATE NICOTINE [Suspect]
     Active Substance: NICOTINE
     Indication: SMOKING CESSATION THERAPY
     Dosage: UNK
     Route: 065
  3. EQUATE NICOTINE [Suspect]
     Active Substance: NICOTINE
     Indication: SMOKING CESSATION THERAPY
     Dosage: UNK (21 MG PATCHES 6 WEEKS )
     Route: 065
  4. EQUATE NICOTINE [Suspect]
     Active Substance: NICOTINE
     Indication: SMOKING CESSATION THERAPY
     Dosage: UNK
  5. EQUATE NICOTINE [Suspect]
     Active Substance: NICOTINE
     Dosage: UNK

REACTIONS (9)
  - Application site erythema [Recovering/Resolving]
  - Application site rash [Recovering/Resolving]
  - Nicotine dependence [Recovering/Resolving]
  - Application site urticaria [Recovering/Resolving]
  - Adverse drug reaction [Recovering/Resolving]
  - Dermatitis contact [Recovering/Resolving]
  - Application site pruritus [Recovering/Resolving]
  - Skin disorder [Recovering/Resolving]
  - Application site inflammation [Recovering/Resolving]
